FAERS Safety Report 24075792 (Version 1)
Quarter: 2024Q3

REPORT INFORMATION
  Report Type: Report from Study
  Country: CA (occurrence: CA)
  Receive Date: 20240710
  Receipt Date: 20240710
  Transmission Date: 20241017
  Serious: Yes (Other)
  Sender: LUNDBECK
  Company Number: CA-LUNDBECK-DKLU3073205

PATIENT

DRUGS (14)
  1. VYEPTI [Suspect]
     Active Substance: EPTINEZUMAB-JJMR
     Dosage: 100 003
     Route: 041
     Dates: start: 20231026
  2. VYEPTI [Suspect]
     Active Substance: EPTINEZUMAB-JJMR
     Dosage: 300 003
     Route: 041
     Dates: start: 20240125
  3. VYEPTI [Suspect]
     Active Substance: EPTINEZUMAB-JJMR
     Indication: Migraine
  4. ZOPICLONE [Concomitant]
     Active Substance: ZOPICLONE
     Indication: Product used for unknown indication
  5. PROGESTERONE [Concomitant]
     Active Substance: PROGESTERONE
     Indication: Product used for unknown indication
  6. CLOBETASOL [Concomitant]
     Active Substance: CLOBETASOL
     Indication: Product used for unknown indication
  7. MELATONIN [Concomitant]
     Active Substance: MELATONIN
     Indication: Product used for unknown indication
  8. VITAMIN B [Concomitant]
     Active Substance: VITAMIN B
     Indication: Product used for unknown indication
  9. VITAMIN D [Concomitant]
     Active Substance: VITAMIN D NOS
     Indication: Product used for unknown indication
  10. TYLENOL [Concomitant]
     Active Substance: ACETAMINOPHEN
     Indication: Product used for unknown indication
  11. ALEVE [Concomitant]
     Active Substance: NAPROXEN SODIUM
  12. ALEVE [Concomitant]
     Active Substance: NAPROXEN SODIUM
     Indication: Product used for unknown indication
  13. ADVIL [Concomitant]
     Active Substance: IBUPROFEN\IBUPROFEN SODIUM
  14. ADVIL [Concomitant]
     Active Substance: IBUPROFEN\IBUPROFEN SODIUM
     Indication: Product used for unknown indication

REACTIONS (4)
  - Nephrolithiasis [Unknown]
  - Sneezing [Recovered/Resolved]
  - Rhinorrhoea [Unknown]
  - Headache [Unknown]

NARRATIVE: CASE EVENT DATE: 20240125
